FAERS Safety Report 14163044 (Version 13)
Quarter: 2018Q3

REPORT INFORMATION
  Report Type: Report from Study
  Country: PL (occurrence: PL)
  Receive Date: 20171106
  Receipt Date: 20180814
  Transmission Date: 20181010
  Serious: Yes (Hospitalization, Other)
  Sender: FDA-Public Use
  Company Number: PL-TEVA-820693ISR

PATIENT
  Age: 61 Year
  Sex: Male

DRUGS (15)
  1. ENOXAPARIN [Suspect]
     Active Substance: ENOXAPARIN
     Indication: PRODUCT USED FOR UNKNOWN INDICATION
  2. MANNITOL. [Suspect]
     Active Substance: MANNITOL
     Indication: SPINAL CORD ISCHAEMIA
     Route: 042
  3. ATORVASTATIN [Suspect]
     Active Substance: ATORVASTATIN
     Indication: SPINAL CORD ISCHAEMIA
     Route: 065
  4. ATORVASTATIN [Suspect]
     Active Substance: ATORVASTATIN
     Indication: PRODUCT USED FOR UNKNOWN INDICATION
  5. TORASEMIDE [Suspect]
     Active Substance: TORSEMIDE
     Indication: SPINAL CORD ISCHAEMIA
     Route: 065
  6. MANNITOL. [Suspect]
     Active Substance: MANNITOL
     Indication: PRODUCT USED FOR UNKNOWN INDICATION
  7. ASPIRIN. [Suspect]
     Active Substance: ASPIRIN
     Indication: SPINAL CORD ISCHAEMIA
     Route: 065
  8. ASPIRIN. [Suspect]
     Active Substance: ASPIRIN
     Indication: PRODUCT USED FOR UNKNOWN INDICATION
  9. RAMIPRIL. [Suspect]
     Active Substance: RAMIPRIL
     Indication: SPINAL CORD ISCHAEMIA
     Route: 048
  10. DEXAVEN [Suspect]
     Active Substance: DEXAMETHASONE
     Indication: PRODUCT USED FOR UNKNOWN INDICATION
  11. TORASEMIDE [Suspect]
     Active Substance: TORSEMIDE
     Indication: PRODUCT USED FOR UNKNOWN INDICATION
  12. ENOXAPARIN [Suspect]
     Active Substance: ENOXAPARIN
     Indication: SPINAL CORD ISCHAEMIA
     Route: 065
  13. ALTEPLASE RECOMBINANT [Concomitant]
     Indication: PRODUCT USED FOR UNKNOWN INDICATION
     Dosage: DOSE OF 0.9MG/KG, 90 MINUTES SINCE THE ONSET OF SYMPTOMS
     Route: 042
  14. DEXAVEN [Suspect]
     Active Substance: DEXAMETHASONE
     Indication: SPINAL CORD ISCHAEMIA
     Route: 042
  15. DEXAMETHASONE. [Suspect]
     Active Substance: DEXAMETHASONE
     Indication: PRODUCT USED FOR UNKNOWN INDICATION
     Route: 065

REACTIONS (2)
  - Condition aggravated [Recovered/Resolved]
  - Paralysis [Recovered/Resolved]

NARRATIVE: CASE EVENT DATE: 20171025
